FAERS Safety Report 12449580 (Version 1)
Quarter: 2016Q2

REPORT INFORMATION
  Report Type: Other
  Country: IT (occurrence: IT)
  Receive Date: 20160609
  Receipt Date: 20160609
  Transmission Date: 20160815
  Serious: No
  Sender: FDA-Public Use
  Company Number: IT-LUPIN PHARMACEUTICALS INC.-2016-01236

PATIENT
  Age: 71 Year
  Sex: Male

DRUGS (4)
  1. TEICOPLANIN [Concomitant]
     Active Substance: TEICOPLANIN
     Indication: MENINGITIS BACTERIAL
     Route: 065
  2. MEROPENEM. [Concomitant]
     Active Substance: MEROPENEM
     Indication: MENINGITIS BACTERIAL
     Route: 065
  3. RIFAMPICIN [Suspect]
     Active Substance: RIFAMPIN
     Indication: MENINGITIS BACTERIAL
     Route: 065
  4. COLISTIN METHANESULFONATE [Concomitant]
     Active Substance: COLISTIN SULFATE
     Indication: MENINGITIS BACTERIAL
     Route: 042

REACTIONS (1)
  - Hypersensitivity [Unknown]
